FAERS Safety Report 4636361-8 (Version None)
Quarter: 2005Q2

REPORT INFORMATION
  Report Type: 
  Country: None (occurrence: None)
  Receive Date: 20050415
  Receipt Date: 20050125
  Transmission Date: 20051028
  Serious: Yes (Other)
  Sender: FDA-Public Use
  Company Number: US-BRISTOL-MYERS SQUIBB COMPANY-12844809

PATIENT
  Age: 54 Year
  Sex: Female

DRUGS (6)
  1. TAXOL [Suspect]
     Indication: OVARIAN CANCER
     Dosage: NEXT DOSE: 200 MG ON 18JAN05
     Route: 042
     Dates: start: 20050111, end: 20050111
  2. CARBOPLATIN [Suspect]
     Indication: OVARIAN CANCER
     Route: 042
     Dates: start: 20050111, end: 20050111
  3. DECADRON [Concomitant]
     Indication: PREMEDICATION
     Route: 042
     Dates: start: 20050111, end: 20050111
  4. TAGAMET [Concomitant]
     Indication: PREMEDICATION
     Dates: start: 20050111, end: 20050111
  5. BENADRYL [Concomitant]
     Indication: PREMEDICATION
     Route: 042
     Dates: start: 20050111, end: 20050111
  6. ALOXI [Concomitant]
     Indication: PREMEDICATION
     Dates: start: 20050111, end: 20050111

REACTIONS (7)
  - BURNING SENSATION [None]
  - CHEST DISCOMFORT [None]
  - DYSPEPSIA [None]
  - DYSPNOEA [None]
  - FLUSHING [None]
  - MUSCULOSKELETAL DISCOMFORT [None]
  - RASH [None]
